FAERS Safety Report 24186659 (Version 1)
Quarter: 2024Q3

REPORT INFORMATION
  Report Type: Spontaneous
  Country: CN (occurrence: None)
  Receive Date: 20240808
  Receipt Date: 20240808
  Transmission Date: 20241017
  Serious: Yes (Other)
  Sender: ASTRAZENECA
  Company Number: 2024A176374

PATIENT
  Age: 24143 Day
  Sex: Female
  Weight: 55 kg

DRUGS (2)
  1. TAGRISSO [Suspect]
     Active Substance: OSIMERTINIB
     Indication: Lung neoplasm malignant
     Route: 048
     Dates: start: 20240621, end: 20240625
  2. CATEQUENTINIB [Suspect]
     Active Substance: CATEQUENTINIB
     Indication: Lung neoplasm malignant
     Route: 048
     Dates: start: 20240621, end: 20240625

REACTIONS (2)
  - Gingival bleeding [Recovering/Resolving]
  - Haemoptysis [Recovering/Resolving]

NARRATIVE: CASE EVENT DATE: 20240625
